FAERS Safety Report 17683857 (Version 1)
Quarter: 2020Q2

REPORT INFORMATION
  Report Type: Report from Study
  Country: US (occurrence: US)
  Receive Date: 20200420
  Receipt Date: 20200420
  Transmission Date: 20200714
  Serious: Yes (Other)
  Sender: FDA-Public Use
  Company Number: US-MYLANLABS-2020M1037178

PATIENT
  Age: 30 Year
  Sex: Male
  Weight: 162 kg

DRUGS (3)
  1. KETAMINE [Suspect]
     Active Substance: KETAMINE
     Indication: DELIRIUM
  2. KETAMINE [Suspect]
     Active Substance: KETAMINE
     Indication: AGITATION
     Dosage: 0.92 MILLIGRAM/KILOGRAM
     Route: 030
  3. KETAMINE [Suspect]
     Active Substance: KETAMINE
     Indication: SEDATIVE THERAPY

REACTIONS (1)
  - Respiratory disorder [Unknown]
